FAERS Safety Report 5859300-0 (Version None)
Quarter: 2008Q3

REPORT INFORMATION
  Report Type: 
  Country: None (occurrence: None)
  Receive Date: 20080827
  Receipt Date: 20080815
  Transmission Date: 20090109
  Serious: Yes (Hospitalization)
  Sender: FDA-Public Use
  Company Number: AU-TYCO HEALTHCARE/MALLINCKRODT-T200801345

PATIENT

DRUGS (6)
  1. MORPHINE [Suspect]
     Indication: PAIN
     Dosage: 4 MG, HR FOR 20H INCLUDING BOLUS OF 1.5 MG
     Route: 042
  2. MORPHINE [Suspect]
     Dosage: 36 MG, AT A RATE OF 18 MG/H
     Route: 042
  3. OXYCONTIN [Suspect]
     Indication: PAIN
     Dosage: 20 MG, UNK
  4. TRAMADOL HCL [Concomitant]
     Indication: PAIN
     Dosage: 100 MG, UNK
     Route: 042
  5. KETOROLAC TROMETHAMINE [Concomitant]
     Indication: ANALGESIA
     Dosage: 10 MG, UNK
     Route: 030
  6. FENTANYL-25 [Concomitant]
     Indication: ANALGESIA
     Dosage: 150 UG, UNK
     Route: 042

REACTIONS (4)
  - CYANOSIS [None]
  - MIOSIS [None]
  - OBSTRUCTIVE AIRWAYS DISORDER [None]
  - UNRESPONSIVE TO STIMULI [None]
